FAERS Safety Report 8091064-5 (Version None)
Quarter: 2012Q1

REPORT INFORMATION
  Report Type: 
  Country: None (occurrence: None)
  Receive Date: 20120129
  Receipt Date: 20111020
  Transmission Date: 20120608
  Serious: No
  Sender: FDA-Public Use
  Company Number: US-ABBOTT-11P-163-0867028-00

PATIENT
  Age: 69 Year
  Sex: Female

DRUGS (9)
  1. LEVOXYL [Concomitant]
     Indication: HYPOTHYROIDISM
  2. ZETIA [Concomitant]
     Indication: BLOOD CHOLESTEROL INCREASED
  3. ASPIRIN [Concomitant]
     Indication: BLOOD CHOLESTEROL INCREASED
  4. NADOLOL [Concomitant]
     Indication: HEART RATE IRREGULAR
  5. VIT D AND C [Concomitant]
     Indication: VITAMIN SUPPLEMENTATION
  6. HUMIRA [Suspect]
     Indication: PSORIASIS
     Dates: start: 20080101
  7. AMLO-BENAZEPRIL [Concomitant]
     Indication: HYPERTENSION
     Dosage: 5/20 MG
  8. ASPIRIN [Concomitant]
     Indication: HYPERTENSION
  9. CITALOPRAM [Concomitant]
     Indication: DEPRESSION

REACTIONS (1)
  - PAIN IN EXTREMITY [None]
